FAERS Safety Report 9763177 (Version 1)
Quarter: 2013Q4

REPORT INFORMATION
  Report Type: Spontaneous
  Country: US (occurrence: US)
  Receive Date: 20131216
  Receipt Date: 20131216
  Transmission Date: 20140711
  Serious: No
  Sender: FDA-Public Use
  Company Number: US-BIOGENIDEC-2013BI106341

PATIENT
  Sex: Female

DRUGS (10)
  1. TECFIDERA [Suspect]
     Indication: MULTIPLE SCLEROSIS
     Route: 048
     Dates: start: 20130923
  2. BACLOFEN [Concomitant]
  3. BUPROPION HCL [Concomitant]
  4. ESTRADIOL [Concomitant]
  5. LIPITOR [Concomitant]
  6. PREVACID [Concomitant]
  7. PRILOSEC [Concomitant]
  8. PROMETRIUM [Concomitant]
  9. SERTRALINE HCL [Concomitant]
  10. ZYRTEC ALLERGY [Concomitant]

REACTIONS (1)
  - Insomnia [Unknown]
